FAERS Safety Report 6360092-X (Version None)
Quarter: 2009Q3

REPORT INFORMATION
  Report Type: 
  Country: None (occurrence: None)
  Receive Date: 20090917
  Receipt Date: 20090910
  Transmission Date: 20100115
  Serious: Yes (Disabling, Other)
  Sender: FDA-Public Use
  Company Number: PHHY2009IT29805

PATIENT
  Age: 78 Year
  Sex: Female

DRUGS (2)
  1. ZOMETA [Suspect]
     Indication: MULTIPLE MYELOMA
     Dosage: 1 DF, QMO
     Route: 042
     Dates: start: 20010101, end: 20061231
  2. LEVOTHYROXINE SODIUM [Concomitant]

REACTIONS (3)
  - DENTAL OPERATION [None]
  - FISTULA [None]
  - OSTEONECROSIS [None]
